FAERS Safety Report 5442610-9 (Version None)
Quarter: 2007Q3

REPORT INFORMATION
  Report Type: 
  Country: None (occurrence: None)
  Receive Date: 20070904
  Receipt Date: 20070828
  Transmission Date: 20080115
  Serious: Yes (Hospitalization)
  Sender: FDA-Public Use
  Company Number: FR-ASTRAZENECA-2006CG01235

PATIENT
  Age: 25 Year
  Sex: Female

DRUGS (5)
  1. MOPRAL [Suspect]
     Route: 048
  2. KARDEGIC [Suspect]
     Route: 048
  3. PRAVASTATIN [Suspect]
     Route: 048
  4. PROGRAF [Suspect]
     Route: 048
     Dates: start: 20020401
  5. CELLCEPT [Suspect]
     Route: 048
     Dates: start: 20020401, end: 20070501

REACTIONS (1)
  - TYPE 1 DIABETES MELLITUS [None]
